FAERS Safety Report 4519905-6 (Version None)
Quarter: 2004Q4

REPORT INFORMATION
  Report Type: 
  Country: None (occurrence: None)
  Receive Date: 20041207
  Receipt Date: 20041126
  Transmission Date: 20050328
  Serious: Yes (Other)
  Sender: FDA-Public Use
  Company Number: PHNR2004AU01672

PATIENT
  Age: 69 Year
  Sex: Female

DRUGS (1)
  1. TEGRETOL [Suspect]
     Dosage: 800 MG/DAY
     Dates: start: 19890101

REACTIONS (2)
  - FRACTURE [None]
  - OSTEOPOROSIS [None]
